FAERS Safety Report 11681783 (Version 2)
Quarter: 2015Q4

REPORT INFORMATION
  Report Type: Spontaneous
  Country: FR (occurrence: FR)
  Receive Date: 20151029
  Receipt Date: 20151105
  Transmission Date: 20160304
  Serious: Yes (Hospitalization, Other)
  Sender: FDA-Public Use
  Company Number: FR-WATSON-2015-19470

PATIENT
  Age: 51 Year
  Sex: Female
  Weight: 65 kg

DRUGS (1)
  1. VERAPAMIL (UNKNOWN) [Suspect]
     Active Substance: VERAPAMIL HYDROCHLORIDE
     Indication: PRODUCT USED FOR UNKNOWN INDICATION
     Dosage: 9.6 G, TOTAL
     Route: 048

REACTIONS (8)
  - Hepatocellular injury [Unknown]
  - Prothrombin level decreased [Unknown]
  - Hyperlactacidaemia [Unknown]
  - Hypotension [Unknown]
  - Sinus bradycardia [Unknown]
  - Overdose [Unknown]
  - Metabolic acidosis [Unknown]
  - Acute kidney injury [Unknown]
